FAERS Safety Report 6736009-2 (Version None)
Quarter: 2010Q2

REPORT INFORMATION
  Report Type: 
  Country: None (occurrence: None)
  Receive Date: 20100521
  Receipt Date: 20100517
  Transmission Date: 20101027
  Serious: Yes (Hospitalization)
  Sender: FDA-Public Use
  Company Number: US-ELI_LILLY_AND_COMPANY-US201005004373

PATIENT
  Sex: Male

DRUGS (6)
  1. HUMALOG [Suspect]
     Indication: DIABETES MELLITUS
     Dosage: UNK, UNK
     Dates: start: 19920101
  2. HUMALOG [Suspect]
  3. JANUVIA [Concomitant]
     Dosage: 100 MG, DAILY (1/D)
     Dates: start: 20090101
  4. PLAVIX [Concomitant]
     Dosage: 75 MG, DAILY (1/D)
     Dates: start: 20071101
  5. METFORMIN HCL [Concomitant]
     Dosage: 500 MG, 2/D
     Dates: start: 20090101
  6. TOPROL-XL [Concomitant]
     Dosage: 500 MG, DAILY (1/D)

REACTIONS (5)
  - BLOOD GLUCOSE INCREASED [None]
  - CHEST DISCOMFORT [None]
  - CORONARY ARTERY BYPASS [None]
  - DRUG DOSE OMISSION [None]
  - IMPAIRED HEALING [None]
